FAERS Safety Report 9712278 (Version 1)
Quarter: 2013Q4

REPORT INFORMATION
  Report Type: Spontaneous
  Country: US (occurrence: US)
  Receive Date: 20131126
  Receipt Date: 20131126
  Transmission Date: 20140711
  Serious: No
  Sender: FDA-Public Use
  Company Number: US-BRISTOL-MYERS SQUIBB COMPANY-18854836

PATIENT
  Sex: Male

DRUGS (5)
  1. BYDUREON [Suspect]
     Dates: start: 2013
  2. LANTUS [Concomitant]
  3. APIDRA [Concomitant]
  4. GABAPENTIN [Concomitant]
  5. METFORMIN [Concomitant]

REACTIONS (1)
  - Decreased appetite [Not Recovered/Not Resolved]
